FAERS Safety Report 7105423-8 (Version None)
Quarter: 2010Q4

REPORT INFORMATION
  Report Type: 
  Country: None (occurrence: None)
  Receive Date: 20101110
  Receipt Date: 20101027
  Transmission Date: 20110411
  Serious: Yes (Hospitalization)
  Sender: FDA-Public Use
  Company Number: 1000017134

PATIENT
  Age: 28 Year
  Sex: Female

DRUGS (6)
  1. ESCITALOPRAM [Suspect]
     Indication: DEPRESSION
     Dosage: (10 MG), ORAL, (20 MG), ORAL
     Route: 048
     Dates: start: 20080710, end: 20081001
  2. ESCITALOPRAM [Suspect]
     Indication: DEPRESSION
     Dosage: (10 MG), ORAL, (20 MG), ORAL
     Route: 048
     Dates: start: 20081001, end: 20090327
  3. LAMOTRIGIN (LAMOTRIGINE) (LAMOTRIGINE) [Concomitant]
  4. LITHIONIT (LITHIUM SULFATE) (LITHIUM SULFATE) [Concomitant]
  5. SOBRIL (OXAZEPAM) (OXAZEPAM) [Concomitant]
  6. ATARAX [Concomitant]

REACTIONS (6)
  - BIPOLAR DISORDER [None]
  - GENERALISED ANXIETY DISORDER [None]
  - MANIA [None]
  - POST-TRAUMATIC STRESS DISORDER [None]
  - SOCIAL PHOBIA [None]
  - SUICIDAL IDEATION [None]
